FAERS Safety Report 8465351-2 (Version None)
Quarter: 2012Q2

REPORT INFORMATION
  Report Type: 
  Country: None (occurrence: None)
  Receive Date: 20120626
  Receipt Date: 20120622
  Transmission Date: 20120825
  Serious: Yes (Hospitalization, Other)
  Sender: FDA-Public Use
  Company Number: PHHY2012DE054128

PATIENT
  Sex: Male

DRUGS (2)
  1. ZOMETA [Concomitant]
  2. AREDIA [Suspect]
     Dates: start: 20000501

REACTIONS (2)
  - PRIMARY SEQUESTRUM [None]
  - OSTEONECROSIS OF JAW [None]
